FAERS Safety Report 6572658-2 (Version None)
Quarter: 2010Q1

REPORT INFORMATION
  Report Type: 
  Country: None (occurrence: None)
  Receive Date: 20100205
  Receipt Date: 20100126
  Transmission Date: 20100710
  Serious: Yes (Disabling)
  Sender: FDA-Public Use
  Company Number: JP-GENENTECH-297636

PATIENT
  Sex: Male

DRUGS (14)
  1. RANIBIZUMAB [Suspect]
     Indication: MACULAR DEGENERATION
     Dosage: 0.05 ML, UNK
     Route: 031
     Dates: start: 20090604
  2. RANIBIZUMAB [Suspect]
     Dosage: 0.05 ML, UNK
     Route: 031
     Dates: start: 20090702
  3. RANIBIZUMAB [Suspect]
     Dosage: 0.05 ML, UNK
     Route: 031
     Dates: start: 20090806
  4. GATIFLOXACIN [Concomitant]
     Indication: DRUG USE FOR UNKNOWN INDICATION
  5. GATIFLOXACIN [Concomitant]
     Dosage: UNK
     Dates: end: 20090801
  6. GATIFLOXACIN [Concomitant]
     Dosage: UNK
     Dates: start: 20090601
  7. VISUDYNE [Concomitant]
     Indication: DRUG USE FOR UNKNOWN INDICATION
     Dosage: UNK
     Dates: start: 20081201
  8. VISUDYNE [Concomitant]
     Dosage: UNK
     Dates: end: 20090301
  9. ALFACALCIDOL [Concomitant]
     Indication: DRUG USE FOR UNKNOWN INDICATION
     Dosage: UNK
  10. SENNOSIDE [Concomitant]
     Indication: DRUG USE FOR UNKNOWN INDICATION
     Dosage: UNK
  11. POLLEN NOS [Concomitant]
     Indication: DRUG USE FOR UNKNOWN INDICATION
     Dosage: UNK
  12. CALCIUM CARBONATE [Concomitant]
     Indication: DRUG USE FOR UNKNOWN INDICATION
     Dosage: UNK
  13. ADONA [Concomitant]
     Indication: DRUG USE FOR UNKNOWN INDICATION
     Dosage: UNK
     Dates: start: 20081212
  14. KALLIDINOGENASE [Concomitant]
     Indication: DRUG USE FOR UNKNOWN INDICATION
     Dosage: UNK
     Dates: start: 20081212

REACTIONS (1)
  - RETINAL PIGMENT EPITHELIAL TEAR [None]
